FAERS Safety Report 8061558-7 (Version None)
Quarter: 2012Q1

REPORT INFORMATION
  Report Type: 
  Country: None (occurrence: None)
  Receive Date: 20120121
  Receipt Date: 20120113
  Transmission Date: 20120608
  Serious: Yes (Other)
  Sender: FDA-Public Use
  Company Number: US-TEVA-2011003308

PATIENT
  Sex: Female
  Weight: 59.02 kg

DRUGS (1)
  1. NUVIGIL [Suspect]
     Route: 048
     Dates: start: 20100727, end: 20101028

REACTIONS (1)
  - SUICIDAL IDEATION [None]
